FAERS Safety Report 11735028 (Version 3)
Quarter: 2016Q2

REPORT INFORMATION
  Report Type: Spontaneous
  Country: JP (occurrence: JP)
  Receive Date: 20151113
  Receipt Date: 20160526
  Transmission Date: 20160815
  Serious: Yes (Other)
  Sender: FDA-Public Use
  Company Number: JP-JNJFOC-20151113278

PATIENT
  Age: 68 Year
  Sex: Male
  Weight: 61 kg

DRUGS (13)
  1. OMNIPAQUE [Suspect]
     Active Substance: IOHEXOL
     Indication: COMPUTERISED TOMOGRAM
     Route: 051
     Dates: start: 20141007, end: 20141007
  2. JANUVIA [Concomitant]
     Active Substance: SITAGLIPTIN PHOSPHATE
     Indication: TYPE 2 DIABETES MELLITUS
     Route: 048
     Dates: start: 20150625
  3. JUVELA N [Concomitant]
     Active Substance: TOCOPHERYL NICOTINATE, D-.ALPHA.
     Route: 048
     Dates: start: 20141216
  4. OMNIPAQUE [Suspect]
     Active Substance: IOHEXOL
     Indication: COMPUTERISED TOMOGRAM
     Route: 051
     Dates: start: 20150403, end: 20150403
  5. MAGMITT [Concomitant]
     Active Substance: MAGNESIUM OXIDE
     Route: 048
     Dates: start: 20140711
  6. OMNIPAQUE [Suspect]
     Active Substance: IOHEXOL
     Indication: COMPUTERISED TOMOGRAM
     Route: 051
     Dates: start: 20150109, end: 20150109
  7. FEBURIC [Concomitant]
     Active Substance: FEBUXOSTAT
     Route: 048
     Dates: start: 20140117
  8. MOHRUS [Concomitant]
     Active Substance: KETOPROFEN
     Indication: ARTHRALGIA
     Route: 062
     Dates: start: 20150820
  9. FALKAMIN [Concomitant]
     Indication: PROPHYLAXIS
     Route: 048
     Dates: start: 20150723
  10. JANUVIA [Concomitant]
     Active Substance: SITAGLIPTIN PHOSPHATE
     Indication: TYPE 2 DIABETES MELLITUS
     Route: 048
  11. CANAGLU [Suspect]
     Active Substance: CANAGLIFLOZIN
     Indication: TYPE 2 DIABETES MELLITUS
     Route: 048
     Dates: start: 20141007, end: 20150625
  12. JANUVIA [Concomitant]
     Active Substance: SITAGLIPTIN PHOSPHATE
     Indication: TYPE 2 DIABETES MELLITUS
     Route: 048
     Dates: start: 20130927, end: 20141006
  13. EICOSAPENTAENOIC ACID ETHYL ESTER [Concomitant]
     Active Substance: ICOSAPENT ETHYL
     Route: 048
     Dates: start: 20141216

REACTIONS (1)
  - Shock symptom [Recovering/Resolving]

NARRATIVE: CASE EVENT DATE: 20150109
